FAERS Safety Report 17197567 (Version 2)
Quarter: 2020Q2

REPORT INFORMATION
  Report Type: Spontaneous
  Country: ES (occurrence: ES)
  Receive Date: 20191224
  Receipt Date: 20200521
  Transmission Date: 20200713
  Serious: Yes (Hospitalization, Other)
  Sender: FDA-Public Use
  Company Number: ES-ALSI-201900540

PATIENT
  Age: 34 Year
  Sex: Female

DRUGS (11)
  1. METAMIZOL [Suspect]
     Active Substance: METAMIZOLE SODIUM
     Route: 042
     Dates: start: 20190214
  2. LORAZEPAM ARISTO [Suspect]
     Active Substance: LORAZEPAM
     Route: 065
     Dates: start: 20190214
  3. RANITIDINE. [Suspect]
     Active Substance: RANITIDINE
     Route: 042
     Dates: start: 20190214
  4. NITROUS OXIDE. [Suspect]
     Active Substance: NITROUS OXIDE
     Indication: ANAESTHESIA PROCEDURE
     Route: 055
     Dates: start: 20190215, end: 20190215
  5. PARACETAMOL ABAMED [Suspect]
     Active Substance: ACETAMINOPHEN
     Route: 042
     Dates: start: 20190214, end: 20190216
  6. PARACETAMOL [Suspect]
     Active Substance: ACETAMINOPHEN
     Route: 065
     Dates: start: 20190217
  7. FILGASTRIM [Suspect]
     Active Substance: FILGRASTIM
     Route: 065
     Dates: start: 20190224
  8. OMEPRAZOL ABDRUG [Suspect]
     Active Substance: OMEPRAZOLE
     Dates: start: 20190214
  9. METAMIZOL HARKLEY [Suspect]
     Active Substance: METAMIZOLE MAGNESIUM
     Route: 042
     Dates: start: 20190214, end: 20190216
  10. MEROPENEM ACCORD [Suspect]
     Active Substance: MEROPENEM
     Route: 042
     Dates: start: 20190224
  11. AMOXICILINA / ACIDO CLAVULANICO DOMAC [Suspect]
     Active Substance: AMOXICILLIN\CLAVULANIC ACID
     Route: 065
     Dates: start: 20190214

REACTIONS (3)
  - Agranulocytosis [Unknown]
  - Anaemia megaloblastic [Unknown]
  - Febrile neutropenia [Unknown]
